FAERS Safety Report 16792319 (Version 1)
Quarter: 2019Q3

REPORT INFORMATION
  Report Type: Spontaneous
  Country: US (occurrence: US)
  Receive Date: 20190910
  Receipt Date: 20190910
  Transmission Date: 20191005
  Serious: No
  Sender: FDA-Public Use
  Company Number: US-AMGEN-USASP2019145493

PATIENT
  Age: 53 Year
  Sex: Male

DRUGS (4)
  1. FILGRASTIM [Suspect]
     Active Substance: FILGRASTIM
     Indication: APLASTIC ANAEMIA
     Dosage: UNK
     Route: 065
     Dates: start: 2019
  2. DASATINIB. [Concomitant]
     Active Substance: DASATINIB
     Indication: CHRONIC MYELOID LEUKAEMIA
     Dosage: UNK (100 MG, 20 MG)
     Dates: start: 2019
  3. IMATINIB. [Concomitant]
     Active Substance: IMATINIB MESYLATE
     Indication: APLASTIC ANAEMIA
     Dosage: UNK
     Dates: start: 2019
  4. NILOTINIB [Concomitant]
     Active Substance: NILOTINIB
     Indication: APLASTIC ANAEMIA
     Dosage: UNK
     Dates: start: 2019

REACTIONS (1)
  - Off label use [Unknown]

NARRATIVE: CASE EVENT DATE: 2019
